FAERS Safety Report 4558779-4 (Version None)
Quarter: 2005Q1

REPORT INFORMATION
  Report Type: 
  Country: None (occurrence: None)
  Receive Date: 20050121
  Receipt Date: 20050111
  Transmission Date: 20050727
  Serious: Yes (Disabling, Other)
  Sender: FDA-Public Use
  Company Number: US-GLAXOSMITHKLINE-A0540291A

PATIENT
  Age: 57 Year
  Sex: Male

DRUGS (6)
  1. LAMICTAL [Suspect]
     Indication: BIPOLAR DISORDER
     Route: 048
  2. ANTABUSE [Concomitant]
  3. SYNTHROID [Concomitant]
  4. TRAZODONE HCL [Concomitant]
  5. AMBIEN [Concomitant]
  6. KLONOPIN [Concomitant]

REACTIONS (1)
  - COGNITIVE DISORDER [None]
